FAERS Safety Report 6720612-X (Version None)
Quarter: 2010Q2

REPORT INFORMATION
  Report Type: 
  Country: None (occurrence: None)
  Receive Date: 20100510
  Receipt Date: 20100330
  Transmission Date: 20101027
  Serious: Yes (Other)
  Sender: FDA-Public Use
  Company Number: AUR-APL-2010-01080

PATIENT
  Age: 54 Year
  Sex: Male
  Weight: 98.1 kg

DRUGS (2)
  1. HYDROCHLOROTHIAZIDE [Suspect]
     Dosage: 25,G - DAILY -
  2. LISINOPRIL [Suspect]
     Dosage: 10MG - DAILY -

REACTIONS (6)
  - ABDOMINAL DISCOMFORT [None]
  - CONTUSION [None]
  - DIARRHOEA [None]
  - LOSS OF CONSCIOUSNESS [None]
  - NAUSEA [None]
  - SYNCOPE [None]
